FAERS Safety Report 5916023-7 (Version None)
Quarter: 2008Q4

REPORT INFORMATION
  Report Type: 
  Country: None (occurrence: None)
  Receive Date: 20081009
  Receipt Date: 20081009
  Transmission Date: 20090506
  Serious: Yes (Hospitalization)
  Sender: FDA-Public Use
  Company Number: None

PATIENT
  Age: 85 Year
  Sex: Male
  Weight: 97.5234 kg

DRUGS (3)
  1. TAXOTERE [Suspect]
     Dosage: 75MG/M2 IV Q 3WKS
     Route: 042
  2. PREDNISONE TAB [Suspect]
     Dosage: 10 MG PO DAILY
     Route: 048
  3. ATRASENTAN/PLACEBO [Suspect]
     Dosage: 10 MG PO DAILY
     Route: 048

REACTIONS (2)
  - PNEUMONIA [None]
  - RESPIRATORY DISTRESS [None]
